FAERS Safety Report 6299534-7 (Version None)
Quarter: 2009Q3

REPORT INFORMATION
  Report Type: 
  Country: None (occurrence: None)
  Receive Date: 20090803
  Receipt Date: 20090715
  Transmission Date: 20100115
  Serious: Yes (Death, Hospitalization)
  Sender: FDA-Public Use
  Company Number: 2009AL001183

PATIENT
  Age: 79 Year
  Sex: Female

DRUGS (7)
  1. DIGOXIN [Suspect]
     Indication: HEART RATE INCREASED
     Dosage: PO
     Route: 048
  2. PREMARIN [Concomitant]
  3. ATENOLOL [Concomitant]
  4. ALTACE [Concomitant]
  5. ASPIRIN [Concomitant]
  6. MONOKET [Concomitant]
  7. LESCOL [Concomitant]

REACTIONS (8)
  - ASTHENIA [None]
  - DIARRHOEA [None]
  - DIVERTICULITIS [None]
  - DIZZINESS [None]
  - ILL-DEFINED DISORDER [None]
  - MULTIPLE INJURIES [None]
  - MUSCLE SPASMS [None]
  - VOMITING [None]
